FAERS Safety Report 4485171-3 (Version None)
Quarter: 2004Q4

REPORT INFORMATION
  Report Type: 
  Country: None (occurrence: None)
  Receive Date: 20041026
  Receipt Date: 20040202
  Transmission Date: 20050328
  Serious: No
  Sender: FDA-Public Use
  Company Number: US-BRISTOL-MYERS SQUIBB COMPANY-12493656

PATIENT
  Age: 62 Year
  Sex: Female

DRUGS (7)
  1. GLUCOPHAGE XR [Suspect]
     Indication: DIABETES MELLITUS
     Route: 048
     Dates: start: 20030401
  2. TOPAMAX [Concomitant]
  3. HYDROCHLOROTHIAZIDE [Concomitant]
  4. NASONEX [Concomitant]
  5. PREMARIN [Concomitant]
  6. COZAAR [Concomitant]
  7. NORVASC [Concomitant]

REACTIONS (1)
  - BLOOD GLUCOSE INCREASED [None]
